FAERS Safety Report 4360927-6 (Version None)
Quarter: 2004Q2

REPORT INFORMATION
  Report Type: 
  Country: None (occurrence: None)
  Receive Date: 20040520
  Receipt Date: 20040511
  Transmission Date: 20050107
  Serious: Yes (Hospitalization)
  Sender: FDA-Public Use
  Company Number: JP-JNJFOC-20040500260

PATIENT
  Sex: Female
  Weight: 53 kg

DRUGS (15)
  1. REMICADE [Suspect]
     Route: 041
     Dates: start: 20040115
  2. REMICADE [Suspect]
     Dosage: (50)
     Route: 041
     Dates: start: 20040115
  3. REMICADE [Suspect]
     Indication: RHEUMATOID ARTHRITIS
     Dosage: (53)
     Route: 041
     Dates: start: 20040115
  4. RHEUMATREX [Suspect]
     Route: 065
     Dates: start: 20011201, end: 20040417
  5. RHEUMATREX [Suspect]
     Indication: RHEUMATOID ARTHRITIS
     Route: 065
     Dates: start: 20011201, end: 20040417
  6. PREDNISOLONE [Suspect]
     Route: 065
  7. PREDNISOLONE [Suspect]
     Route: 065
  8. PREDNISOLONE [Suspect]
     Route: 065
  9. INH [Concomitant]
     Route: 065
     Dates: start: 20031220, end: 20040517
  10. WATER SOLUBLE PREDNISOLONE [Concomitant]
     Route: 042
     Dates: start: 20040419, end: 20040425
  11. AZULFIDINE [Concomitant]
     Route: 065
     Dates: start: 20040423
  12. INDOMETHACIN [Concomitant]
     Route: 065
     Dates: start: 20031220, end: 20040417
  13. FOLIAMIN [Concomitant]
     Route: 065
     Dates: end: 20040417
  14. TAKEPRON [Concomitant]
     Route: 065
     Dates: start: 20031220
  15. MUCOSTA [Concomitant]
     Route: 065
     Dates: start: 20031220

REACTIONS (13)
  - ALANINE AMINOTRANSFERASE INCREASED [None]
  - BLOOD ALKALINE PHOSPHATASE INCREASED [None]
  - DRUG INEFFECTIVE [None]
  - EMPYEMA [None]
  - GAMMA-GLUTAMYLTRANSFERASE INCREASED [None]
  - HAEMATOCRIT DECREASED [None]
  - HAEMOGLOBIN DECREASED [None]
  - PLATELET COUNT INCREASED [None]
  - PNEUMONIA [None]
  - PYOTHORAX [None]
  - RED BLOOD CELL COUNT DECREASED [None]
  - STREPTOCOCCAL INFECTION [None]
  - WHITE BLOOD CELL COUNT DECREASED [None]
